FAERS Safety Report 12937643 (Version 1)
Quarter: 2016Q4

REPORT INFORMATION
  Report Type: Spontaneous
  Country: US (occurrence: US)
  Receive Date: 20161114
  Receipt Date: 20161114
  Transmission Date: 20170207
  Serious: Yes (Death)
  Sender: FDA-Public Use
  Company Number: US-SAGENTPRD-2016-US-000053

PATIENT
  Age: 8 Month
  Sex: 0

DRUGS (17)
  1. IFOSFAMIDE. [Concomitant]
     Active Substance: IFOSFAMIDE
  2. VINCRISTINE [Concomitant]
     Active Substance: VINCRISTINE
  3. METHYLPREDNISOLONE. [Concomitant]
     Active Substance: METHYLPREDNISOLONE
  4. FILGRASTIM [Concomitant]
     Active Substance: FILGRASTIM
  5. ETOPOSIDE. [Concomitant]
     Active Substance: ETOPOSIDE
  6. DEXAMETHASONE. [Concomitant]
     Active Substance: DEXAMETHASONE
  7. CYTARABINE. [Concomitant]
     Active Substance: CYTARABINE
  8. DAUNORUBICIN [Concomitant]
     Active Substance: DAUNORUBICIN
  9. CYCLOPHOSPHAMIDE. [Concomitant]
     Active Substance: CYCLOPHOSPHAMIDE
  10. PREDNISONE. [Concomitant]
     Active Substance: PREDNISONE
  11. LEUCOVORIN CALCIUM FOR INJECTION [Suspect]
     Active Substance: LEUCOVORIN CALCIUM
     Dosage: UNKNOWN
  12. METHOTREXATE. [Concomitant]
     Active Substance: METHOTREXATE
  13. HYDROCORTISONE. [Concomitant]
     Active Substance: HYDROCORTISONE
  14. MERCAPTOPURINE. [Concomitant]
     Active Substance: MERCAPTOPURINE
  15. CYCLOSPORINE. [Concomitant]
     Active Substance: CYCLOSPORINE
  16. PEGASPARGASE [Concomitant]
     Active Substance: PEGASPARGASE
  17. ASPARAGINASE [Concomitant]
     Active Substance: ASPARAGINASE

REACTIONS (3)
  - Pseudomonal sepsis [Fatal]
  - Bronchopulmonary aspergillosis [Fatal]
  - Secondary immunodeficiency [None]
